FAERS Safety Report 21017251 (Version 1)
Quarter: 2022Q2

REPORT INFORMATION
  Report Type: Spontaneous
  Country: US (occurrence: None)
  Receive Date: 20220627
  Receipt Date: 20220627
  Transmission Date: 20220720
  Serious: No
  Sender: FDA-Public Use
  Company Number: None

PATIENT
  Age: 72 Year
  Sex: Male
  Weight: 76 kg

DRUGS (1)
  1. CILOSTAZOL [Suspect]
     Active Substance: CILOSTAZOL
     Dosage: 100 MG BID PO?
     Route: 048
     Dates: start: 20210720, end: 20211206

REACTIONS (1)
  - Mental status changes [None]

NARRATIVE: CASE EVENT DATE: 20211206
